FAERS Safety Report 8517283-9 (Version None)
Quarter: 2012Q3

REPORT INFORMATION
  Report Type: 
  Country: None (occurrence: None)
  Receive Date: 20120718
  Receipt Date: 20120708
  Transmission Date: 20120928
  Serious: Yes (Hospitalization, Other)
  Sender: FDA-Public Use
  Company Number: US-VERTEX PHARMACEUTICALS INC.-AE-2012-010228

PATIENT
  Sex: Female
  Weight: 45.4 kg

DRUGS (1)
  1. INCIVEK [Suspect]
     Indication: HEPATITIS C
     Route: 048

REACTIONS (4)
  - PYREXIA [None]
  - BLOOD PRESSURE DECREASED [None]
  - BLOOD COUNT ABNORMAL [None]
  - HEART RATE DECREASED [None]
